FAERS Safety Report 7970975-2 (Version None)
Quarter: 2011Q4

REPORT INFORMATION
  Report Type: 
  Country: None (occurrence: None)
  Receive Date: 20111212
  Receipt Date: 20111207
  Transmission Date: 20120403
  Serious: Yes (Death, Other)
  Sender: FDA-Public Use
  Company Number: PHHY2011FR107892

PATIENT
  Age: 57 Year
  Sex: Female

DRUGS (6)
  1. CYCLOSPORINE [Suspect]
     Indication: STEM CELL TRANSPLANT
  2. CYCLOSPORINE [Suspect]
     Indication: PROPHYLAXIS AGAINST GRAFT VERSUS HOST DISEASE
  3. METHOTREXATE [Concomitant]
     Indication: STEM CELL TRANSPLANT
  4. FLUDARABINE PHOSPHATE [Concomitant]
     Indication: STEM CELL TRANSPLANT
     Dosage: 30 MG/M2, QD FOR 5 DAYS
     Route: 042
  5. BUSULFAN [Concomitant]
     Indication: STEM CELL TRANSPLANT
     Dosage: 0.8 MG/KG, X 4/DAY FOR 2 DAYS
     Route: 042
  6. THYMOGLOBULIN [Concomitant]
     Indication: STEM CELL TRANSPLANT
     Dosage: 2.5 MG/KG, QD FOR 2 DAYS

REACTIONS (3)
  - BLOOD STEM CELL TRANSPLANT FAILURE [None]
  - CHRONIC GRAFT VERSUS HOST DISEASE [None]
  - ACUTE GRAFT VERSUS HOST DISEASE [None]
